FAERS Safety Report 7002230-1 (Version None)
Quarter: 2010Q3

REPORT INFORMATION
  Report Type: 
  Country: None (occurrence: None)
  Receive Date: 20100920
  Receipt Date: 20070611
  Transmission Date: 20110219
  Serious: No
  Sender: FDA-Public Use
  Company Number: US-ASTRAZENECA-2006UW11970

PATIENT
  Sex: Female
  Weight: 146.1 kg

DRUGS (8)
  1. SEROQUEL [Suspect]
     Indication: BIPOLAR DISORDER
     Dosage: 25-100 MG
     Route: 048
     Dates: start: 20030502
  2. SEROQUEL [Suspect]
     Dosage: 25-100MG
     Route: 048
     Dates: end: 20070101
  3. ZYPREXA [Suspect]
  4. RISPERDAL [Concomitant]
  5. STELAZINE [Concomitant]
  6. MELLARIL [Concomitant]
  7. LEXAPRO [Concomitant]
     Dosage: 10-30 MG
     Dates: start: 20030509
  8. TRILEPTAL [Concomitant]
     Dosage: 300-1200 MG
     Dates: start: 20030516

REACTIONS (3)
  - CHRONIC OBSTRUCTIVE PULMONARY DISEASE [None]
  - CHRONIC RESPIRATORY FAILURE [None]
  - DIABETES MELLITUS [None]
